FAERS Safety Report 4907848-5 (Version None)
Quarter: 2006Q1

REPORT INFORMATION
  Report Type: 
  Country: None (occurrence: None)
  Receive Date: 20060210
  Receipt Date: 20060202
  Transmission Date: 20060701
  Serious: Yes (Disabling)
  Sender: FDA-Public Use
  Company Number: FI-BOEHRINGER INGELHEIM PHARMACEUTICALS, INC.-2006-SW-00055SF

PATIENT
  Sex: Female

DRUGS (3)
  1. SIFROL TAB. 0.18 MG [Suspect]
     Indication: RESTLESS LEGS SYNDROME
     Route: 048
     Dates: start: 20041001, end: 20051024
  2. PLENDIL [Concomitant]
     Route: 048
  3. LIPITOR [Concomitant]
     Route: 048

REACTIONS (4)
  - DYSPNOEA [None]
  - FLANK PAIN [None]
  - LUNG DISORDER [None]
  - PLEURISY [None]
